FAERS Safety Report 8251435-0 (Version None)
Quarter: 2012Q1

REPORT INFORMATION
  Report Type: 
  Country: None (occurrence: None)
  Receive Date: 20120321
  Receipt Date: 20110908
  Transmission Date: 20120608
  Serious: Yes (Other)
  Sender: FDA-Public Use
  Company Number: 2009020065

PATIENT
  Sex: Female
  Weight: 68.4932 kg

DRUGS (1)
  1. RHOPHYLAC [Suspect]
     Indication: PREGNANCY
     Dosage: INTRAMUSCULAR
     Route: 030
     Dates: start: 20090116, end: 20090116

REACTIONS (1)
  - RHESUS ANTIBODIES [None]
